FAERS Safety Report 21379990 (Version 4)
Quarter: 2022Q4

REPORT INFORMATION
  Report Type: Spontaneous
  Country: JP (occurrence: JP)
  Receive Date: 20220927
  Receipt Date: 20221110
  Transmission Date: 20230112
  Serious: Yes (Hospitalization, Other)
  Sender: FDA-Public Use
  Company Number: JP-GILEAD-2022-0595548

PATIENT
  Age: 85 Year
  Sex: Female
  Weight: 33.4 kg

DRUGS (24)
  1. VEKLURY [Suspect]
     Active Substance: REMDESIVIR
     Indication: COVID-19
     Dosage: 200 MG, QD
     Route: 041
     Dates: start: 20220824, end: 20220824
  2. VEKLURY [Suspect]
     Active Substance: REMDESIVIR
     Dosage: 100 MG, QD
     Route: 041
     Dates: start: 20220825, end: 20220828
  3. VEKLURY [Suspect]
     Active Substance: REMDESIVIR
     Dosage: 100 MG, QD
     Route: 041
     Dates: start: 20220830, end: 20220903
  4. CEFEPIME [Suspect]
     Active Substance: CEFEPIME HYDROCHLORIDE
     Indication: Pneumonia bacterial
     Dosage: UNK
     Route: 065
     Dates: start: 20220907, end: 20220909
  5. CARBIDOPA\LEVODOPA [Concomitant]
     Active Substance: CARBIDOPA\LEVODOPA
     Indication: Parkinson^s disease
     Dosage: UNK
     Route: 048
     Dates: end: 20220824
  6. EPERISONE HYDROCHLORIDE [Concomitant]
     Active Substance: EPERISONE HYDROCHLORIDE
     Indication: Parkinson^s disease
     Dosage: UNK
     Route: 048
     Dates: end: 20220824
  7. TRIMOL [PIROHEPTINE HYDROCHLORIDE] [Concomitant]
     Indication: Parkinson^s disease
     Dosage: UNK
     Route: 048
     Dates: end: 20220824
  8. CEFMETAZOLE [Concomitant]
     Active Substance: CEFMETAZOLE
     Indication: Antipyresis
     Dosage: 1 G, QD
     Route: 041
     Dates: start: 20220824, end: 20220828
  9. CEFMETAZOLE [Concomitant]
     Active Substance: CEFMETAZOLE
     Indication: Chills
  10. CEFMETAZOLE [Concomitant]
     Active Substance: CEFMETAZOLE
     Indication: Infection
  11. CEFMETAZOLE [Concomitant]
     Active Substance: CEFMETAZOLE
     Indication: Pneumonia bacterial
  12. SOLULACT S [Concomitant]
     Indication: Supplementation therapy
     Dosage: 500 ML, QD
     Route: 041
     Dates: start: 20220825, end: 20220905
  13. NYROZIN [Concomitant]
     Indication: Vitamin supplementation
     Dosage: 10 ML, QD
     Route: 041
     Dates: start: 20220825, end: 20220905
  14. SOLDEM 3A [Concomitant]
     Active Substance: CARBOHYDRATES\POTASSIUM CHLORIDE\SODIUM CHLORIDE\SODIUM LACTATE
     Indication: Supplementation therapy
     Dosage: 500 ML, QD
     Route: 041
     Dates: start: 20220825, end: 20220905
  15. AMINO ACIDS\DEXTROSE\ELECTROLYTES NOS\VITAMINS [Concomitant]
     Active Substance: AMINO ACIDS\DEXTROSE\ELECTROLYTES NOS\VITAMINS
     Indication: Supplementation therapy
     Dosage: 500 ML, QD
     Route: 041
     Dates: start: 20220830
  16. BROMHEXINE HYDROCHLORIDE [Concomitant]
     Active Substance: BROMHEXINE HYDROCHLORIDE
     Indication: Productive cough
     Dosage: 4 MG, QD
     Route: 042
     Dates: start: 20220825, end: 20220829
  17. BROMHEXINE HYDROCHLORIDE [Concomitant]
     Active Substance: BROMHEXINE HYDROCHLORIDE
     Indication: Atelectasis
     Dosage: 4 MG, BID
     Route: 042
     Dates: start: 20220831, end: 20220901
  18. BROMHEXINE HYDROCHLORIDE [Concomitant]
     Active Substance: BROMHEXINE HYDROCHLORIDE
     Indication: Atelectasis
     Dosage: 2 MG, QD
     Route: 042
     Dates: start: 20220905, end: 20220907
  19. LEVODOPA [Concomitant]
     Active Substance: LEVODOPA
     Indication: Parkinson^s disease
     Dosage: UNK
     Route: 048
     Dates: end: 20220825
  20. LEVODOPA [Concomitant]
     Active Substance: LEVODOPA
     Dosage: 50 MG, QD
     Route: 042
     Dates: start: 20220826
  21. CEFOPERAZONE SODIUM\SULBACTAM SODIUM [Concomitant]
     Active Substance: CEFOPERAZONE SODIUM\SULBACTAM SODIUM
     Indication: Prophylaxis
     Dosage: UNK
     Dates: start: 20220825
  22. INDOMETHACIN [Concomitant]
     Active Substance: INDOMETHACIN
     Indication: Parkinson^s disease
     Dosage: UNK
  23. CAMPHOR\MENTHOL\METHYL SALICYLATE [Concomitant]
     Active Substance: CAMPHOR\MENTHOL\METHYL SALICYLATE
     Indication: Pain
     Dosage: UNK, PRN
     Route: 062
  24. ACETAMINOPHEN [Concomitant]
     Active Substance: ACETAMINOPHEN
     Dosage: 100 MG

REACTIONS (5)
  - Pneumonia bacterial [Recovered/Resolved]
  - Parkinson^s disease [Recovering/Resolving]
  - Atelectasis [Recovering/Resolving]
  - Atelectasis [Recovered/Resolved]
  - Jaundice [Recovered/Resolved]

NARRATIVE: CASE EVENT DATE: 20220830
